FAERS Safety Report 4589729-2 (Version None)
Quarter: 2005Q1

REPORT INFORMATION
  Report Type: 
  Country: None (occurrence: None)
  Receive Date: 20050217
  Receipt Date: 20050204
  Transmission Date: 20050727
  Serious: Yes (Hospitalization)
  Sender: FDA-Public Use
  Company Number: 2005012955

PATIENT
  Age: 82 Year
  Sex: Female

DRUGS (2)
  1. CELEBREX [Suspect]
     Indication: PAIN
     Dosage: ORAL
     Route: 048
     Dates: end: 20041115
  2. NABUMETONE [Suspect]
     Indication: ILL-DEFINED DISORDER

REACTIONS (5)
  - DRUG HYPERSENSITIVITY [None]
  - DRUG TOLERANCE [None]
  - PYREXIA [None]
  - TOXIC SKIN ERUPTION [None]
  - URTICARIA [None]
